FAERS Safety Report 5234103-9 (Version None)
Quarter: 2007Q1

REPORT INFORMATION
  Report Type: 
  Country: None (occurrence: None)
  Receive Date: 20070208
  Receipt Date: 20070131
  Transmission Date: 20070707
  Serious: Yes (Life-Threatening, Hospitalization)
  Sender: FDA-Public Use
  Company Number: FR-SHR-FR-2007-003829

PATIENT
  Age: 81 Year
  Sex: Female

DRUGS (4)
  1. SOTALOL HYDROCHLORIDE [Suspect]
     Indication: CARDIAC DISORDER
     Route: 048
     Dates: start: 19970101, end: 20070107
  2. KARDEGIC                                /FRA/ [Suspect]
     Dosage: 160 MG, 1X/DAY
     Dates: start: 19970101, end: 20070107
  3. EXELON [Suspect]
     Dates: start: 20050101, end: 20070107
  4. MEMANTINE HCL [Suspect]
     Dosage: 10 GTT, 3X/DAY
     Route: 048
     Dates: start: 20061217, end: 20070107

REACTIONS (2)
  - DIABETIC HYPEROSMOLAR COMA [None]
  - PANCREATITIS [None]
